FAERS Safety Report 5057611-2 (Version None)
Quarter: 2006Q3

REPORT INFORMATION
  Report Type: 
  Country: None (occurrence: None)
  Receive Date: 20060721
  Receipt Date: 20051221
  Transmission Date: 20061208
  Serious: No
  Sender: FDA-Public Use
  Company Number: US-GLAXOSMITHKLINE-A0586645A

PATIENT
  Sex: Male

DRUGS (8)
  1. AVANDIA [Suspect]
     Dosage: 4MG PER DAY
     Route: 048
  2. METFORMIN [Concomitant]
  3. GEMFIBROZIL [Concomitant]
  4. GLYBURIDE [Concomitant]
  5. METOPROLOL [Concomitant]
  6. ASPIRIN [Concomitant]
  7. OCUVITE [Concomitant]
  8. NEXIUM [Concomitant]

REACTIONS (1)
  - BLOOD TRIGLYCERIDES INCREASED [None]
